FAERS Safety Report 20824095 (Version 1)
Quarter: 2022Q2

REPORT INFORMATION
  Report Type: Spontaneous
  Country: US (occurrence: US)
  Receive Date: 20220513
  Receipt Date: 20220513
  Transmission Date: 20220720
  Serious: Yes (Hospitalization, Other)
  Sender: FDA-Public Use
  Company Number: US-SANOFI-01094590

PATIENT
  Age: 70 Year
  Sex: Female

DRUGS (1)
  1. LANTUS SOLOSTAR [Suspect]
     Active Substance: INSULIN GLARGINE
     Indication: Type 2 diabetes mellitus
     Dosage: 17 UNITS AM, 31 UNITS IN THE EVENING
     Dates: start: 2022

REACTIONS (4)
  - Fall [Unknown]
  - Pelvic fracture [Unknown]
  - Inappropriate schedule of product administration [Unknown]
  - Product storage error [Unknown]

NARRATIVE: CASE EVENT DATE: 20220101
